FAERS Safety Report 5215805-7 (Version None)
Quarter: 2007Q1

REPORT INFORMATION
  Report Type: 
  Country: None (occurrence: None)
  Receive Date: 20070118
  Receipt Date: 20070105
  Transmission Date: 20070707
  Serious: Yes (Hospitalization)
  Sender: FDA-Public Use
  Company Number: US019148

PATIENT
  Age: 76 Year
  Sex: Male

DRUGS (9)
  1. PROVIGIL [Suspect]
     Indication: SLEEP APNOEA SYNDROME
     Dosage: 200 MG QD ORAL
     Route: 048
     Dates: start: 20060917, end: 20061129
  2. PROVIGIL [Suspect]
     Indication: SLEEP APNOEA SYNDROME
     Dosage: 400 MG QD ORAL
     Route: 048
     Dates: start: 20061130, end: 20061201
  3. PROCARDIA [Concomitant]
  4. XANAX [Concomitant]
  5. PREVACID [Concomitant]
  6. COMBIVENT [Concomitant]
  7. ASPIRIN [Concomitant]
  8. AMBIEN [Concomitant]
  9. BENICAR [Concomitant]

REACTIONS (2)
  - CORONARY ARTERY OCCLUSION [None]
  - MYOCARDIAL INFARCTION [None]
